FAERS Safety Report 21919726 (Version 1)
Quarter: 2023Q1

REPORT INFORMATION
  Report Type: Spontaneous
  Country: MX (occurrence: MX)
  Receive Date: 20230127
  Receipt Date: 20230127
  Transmission Date: 20230417
  Serious: Yes (Death)
  Sender: FDA-Public Use
  Company Number: MX-LUNDBECK-DKLU3057485

PATIENT
  Sex: Male

DRUGS (1)
  1. CLOBAZAM [Suspect]
     Active Substance: CLOBAZAM
     Indication: Product used for unknown indication
     Route: 048

REACTIONS (1)
  - Leukaemia [Fatal]

NARRATIVE: CASE EVENT DATE: 20220801
